FAERS Safety Report 25760518 (Version 1)
Quarter: 2025Q3

REPORT INFORMATION
  Report Type: Spontaneous
  Country: US (occurrence: None)
  Receive Date: 20250904
  Receipt Date: 20250904
  Transmission Date: 20251020
  Serious: Yes (Hospitalization)
  Sender: FDA-CTU
  Company Number: None

PATIENT
  Age: 58 Year
  Sex: Male
  Weight: 106.59 kg

DRUGS (3)
  1. CYTARABINE [Suspect]
     Active Substance: CYTARABINE
     Dates: end: 20250317
  2. METHOTREXATE [Suspect]
     Active Substance: METHOTREXATE
     Dates: end: 20250314
  3. PONATINIB [Suspect]
     Active Substance: PONATINIB
     Dates: end: 20250330

REACTIONS (18)
  - Neutropenia [None]
  - Joint swelling [None]
  - White blood cell count abnormal [None]
  - Vascular device infection [None]
  - Cellulitis [None]
  - Bacteraemia [None]
  - Chest pain [None]
  - Pain in extremity [None]
  - Tachycardia [None]
  - Troponin increased [None]
  - Hypotension [None]
  - Coronary artery stenosis [None]
  - Seizure like phenomena [None]
  - Agonal respiration [None]
  - Pulse absent [None]
  - Ventricular fibrillation [None]
  - Respiratory failure [None]
  - Thrombosis in device [None]

NARRATIVE: CASE EVENT DATE: 20250329
